FAERS Safety Report 25855745 (Version 1)
Quarter: 2025Q3

REPORT INFORMATION
  Report Type: Spontaneous
  Country: JP (occurrence: JP)
  Receive Date: 20250928
  Receipt Date: 20250928
  Transmission Date: 20251021
  Serious: Yes (Other)
  Sender: ALEXION PHARMACEUTICALS
  Company Number: JP-ASTRAZENECA-202509JPN017361JP

PATIENT
  Age: 51 Year
  Sex: Female

DRUGS (3)
  1. FASLODEX [Suspect]
     Active Substance: FULVESTRANT
  2. FASLODEX [Suspect]
     Active Substance: FULVESTRANT
  3. IBRANCE [Concomitant]
     Active Substance: PALBOCICLIB
     Route: 065

REACTIONS (1)
  - Blood creatine phosphokinase increased [Unknown]
